FAERS Safety Report 7073820-5 (Version None)
Quarter: 2010Q4

REPORT INFORMATION
  Report Type: 
  Country: None (occurrence: None)
  Receive Date: 20101029
  Receipt Date: 20100819
  Transmission Date: 20110411
  Serious: No
  Sender: FDA-Public Use
  Company Number: A0876761A

PATIENT
  Age: 42 Year
  Sex: Male

DRUGS (10)
  1. ADVAIR DISKUS 100/50 [Suspect]
     Indication: CHRONIC OBSTRUCTIVE PULMONARY DISEASE
     Route: 055
     Dates: start: 20100101
  2. PROVENTIL [Concomitant]
  3. BUSPAR [Concomitant]
     Dosage: 10MG SIX TIMES PER DAY
  4. GABAPENTIN [Concomitant]
     Dosage: 600MG TWICE PER DAY
  5. FAMOTIDINE 20MG TWICE DAILY [Concomitant]
  6. OMEPRAZOLE [Concomitant]
  7. ABILIFY [Concomitant]
  8. WELLBUTRIN [Concomitant]
  9. LISINOPRIL [Concomitant]
  10. AMLODIPINE BESYLATE [Concomitant]

REACTIONS (2)
  - COUGH [None]
  - PRODUCT QUALITY ISSUE [None]
